FAERS Safety Report 4326790-4 (Version None)
Quarter: 2004Q1

REPORT INFORMATION
  Report Type: 
  Country: None (occurrence: None)
  Receive Date: 20040330
  Receipt Date: 20040330
  Transmission Date: 20041129
  Serious: Yes (Other)
  Sender: FDA-Public Use
  Company Number: None

PATIENT
  Sex: Female
  Weight: 87.9978 kg

DRUGS (3)
  1. TOPAMAX [Suspect]
     Indication: MIGRAINE WITHOUT AURA
     Dosage: 2 A DAY
     Dates: start: 20040320
  2. CELEXA [Suspect]
     Indication: ANXIETY
     Dosage: 1 A DAY
     Dates: start: 20040303
  3. CELEXA [Suspect]
     Indication: PANIC ATTACK
     Dosage: 1 A DAY
     Dates: start: 20040303

REACTIONS (11)
  - DIZZINESS [None]
  - DYSARTHRIA [None]
  - FEELING HOT AND COLD [None]
  - FLATULENCE [None]
  - HYPOAESTHESIA [None]
  - NAUSEA [None]
  - NERVOUSNESS [None]
  - PALPITATIONS [None]
  - POLLAKIURIA [None]
  - TREMOR [None]
  - VISION BLURRED [None]
